FAERS Safety Report 6129958-X (Version None)
Quarter: 2009Q1

REPORT INFORMATION
  Report Type: 
  Country: None (occurrence: None)
  Receive Date: 20090323
  Receipt Date: 20090323
  Transmission Date: 20090719
  Serious: Yes (Life-Threatening, Hospitalization, Disabling, Other)
  Sender: FDA-Public Use
  Company Number: None

PATIENT
  Age: 54 Year
  Sex: Female
  Weight: 74.3899 kg

DRUGS (3)
  1. LEVOTHYROXINE SODIUM [Suspect]
     Indication: AUTOIMMUNE THYROIDITIS
     Dosage: 50, 75, 100 1-DAY 6-WEEKS EACH PO
     Route: 048
     Dates: start: 20081104, end: 20090213
  2. LEVOTHYROXINE SODIUM [Suspect]
  3. SYNTHROID [Suspect]

REACTIONS (5)
  - ABASIA [None]
  - MALAISE [None]
  - MOVEMENT DISORDER [None]
  - PETIT MAL EPILEPSY [None]
  - SOMNOLENCE [None]
